FAERS Safety Report 9944572 (Version 1)
Quarter: 2014Q1

REPORT INFORMATION
  Report Type: Report from Study
  Country: US (occurrence: US)
  Receive Date: 20140303
  Receipt Date: 20140303
  Transmission Date: 20141002
  Serious: No
  Sender: FDA-Public Use
  Company Number: US-ABBVIE-13P-163-1048852-00

PATIENT
  Age: 37 Year
  Sex: Female

DRUGS (14)
  1. HUMIRA [Suspect]
     Indication: AUTOIMMUNE ARTHRITIS
     Dates: start: 201301
  2. HUMIRA [Suspect]
     Indication: SARCOIDOSIS
  3. HUMIRA [Suspect]
     Indication: IRIDOCYCLITIS
  4. PREDNISONE [Concomitant]
     Indication: AUTOIMMUNE ARTHRITIS
  5. PREDNISONE [Concomitant]
     Indication: SARCOIDOSIS
  6. PREDNISONE [Concomitant]
     Indication: IRIDOCYCLITIS
  7. MS CONTIN [Concomitant]
     Indication: PAIN
  8. DOXEPIN [Concomitant]
     Indication: NEUROPATHY PERIPHERAL
  9. TOPIRAMATE [Concomitant]
     Indication: MIGRAINE
  10. ANASPAZ [Concomitant]
     Indication: ABDOMINAL PAIN
  11. MOBIC [Concomitant]
     Indication: PRODUCT USED FOR UNKNOWN INDICATION
  12. ESGIC [Concomitant]
     Indication: MIGRAINE
  13. PERCOCET [Concomitant]
     Indication: PAIN
  14. CELEXA [Concomitant]
     Indication: ANXIETY

REACTIONS (9)
  - Off label use [Not Recovered/Not Resolved]
  - Flushing [Recovered/Resolved]
  - Dizziness [Recovered/Resolved]
  - Feeling hot [Recovered/Resolved]
  - Injection site papule [Recovered/Resolved]
  - Injection site mass [Recovered/Resolved]
  - Injection site pain [Recovered/Resolved]
  - Injection site pruritus [Unknown]
  - Injection site pain [Not Recovered/Not Resolved]
